FAERS Safety Report 16055483 (Version 2)
Quarter: 2019Q2

REPORT INFORMATION
  Report Type: Spontaneous
  Country: CN (occurrence: CN)
  Receive Date: 20190311
  Receipt Date: 20190411
  Transmission Date: 20190711
  Serious: Yes (Hospitalization)
  Sender: FDA-Public Use
  Company Number: CN-GLAXOSMITHKLINE-CN2019GSK040549

PATIENT
  Sex: Male
  Weight: 90 kg

DRUGS (3)
  1. AMINOPHYLLINE. [Suspect]
     Active Substance: AMINOPHYLLINE
     Indication: ASTHMA
     Dosage: 1 DF, BID (1 TABLET BID)
     Route: 048
  2. SERETIDE [Suspect]
     Active Substance: FLUTICASONE PROPIONATE\SALMETEROL XINAFOATE
     Indication: ASTHMA
     Dosage: 1 PUFF(S), BID
     Route: 055
  3. SERETIDE [Suspect]
     Active Substance: FLUTICASONE PROPIONATE\SALMETEROL XINAFOATE
     Dosage: UNK, 1X60D_CN/T
     Route: 055
     Dates: start: 201902

REACTIONS (4)
  - Product complaint [Unknown]
  - Oral infection [Recovered/Resolved]
  - Drug ineffective [Recovered/Resolved]
  - Asthma [Recovered/Resolved]
